FAERS Safety Report 6661128-9 (Version None)
Quarter: 2010Q1

REPORT INFORMATION
  Report Type: 
  Country: None (occurrence: None)
  Receive Date: 20100326
  Receipt Date: 20080623
  Transmission Date: 20100710
  Serious: Yes (Hospitalization, Other)
  Sender: FDA-Public Use
  Company Number: POMP-1000125

PATIENT
  Age: 9 Month
  Sex: Female
  Weight: 6.3 kg

DRUGS (1)
  1. MYOZYME [Suspect]
     Indication: GLYCOGEN STORAGE DISEASE TYPE II
     Dosage: 20 MG/KG, Q2W, INTRAVENOUS
     Route: 042

REACTIONS (5)
  - BRONCHIOLITIS [None]
  - EAR INFECTION [None]
  - ENTERAL NUTRITION [None]
  - INFECTION [None]
  - RESPIRATORY FAILURE [None]
